FAERS Safety Report 13121791 (Version 1)
Quarter: 2017Q1

REPORT INFORMATION
  Report Type: Spontaneous
  Country: US (occurrence: US)
  Receive Date: 20170116
  Receipt Date: 20170116
  Transmission Date: 20170428
  Serious: No
  Sender: FDA-Public Use
  Company Number: None

PATIENT
  Age: 66 Year
  Sex: Male

DRUGS (2)
  1. TACROLIMUS CAP 0.5MG [Suspect]
     Active Substance: TACROLIMUS
     Indication: PROPHYLAXIS
  2. TACROLIMUS CAP 0.5MG [Suspect]
     Active Substance: TACROLIMUS
     Indication: LIVER TRANSPLANT

REACTIONS (6)
  - Bronchial disorder [None]
  - Headache [None]
  - Restlessness [None]
  - Weight decreased [None]
  - Confusional state [None]
  - Sleep disorder [None]

NARRATIVE: CASE EVENT DATE: 20170115
